FAERS Safety Report 11282333 (Version 5)
Quarter: 2018Q2

REPORT INFORMATION
  Report Type: Report from Study
  Country: GB (occurrence: GB)
  Receive Date: 20150720
  Receipt Date: 20180426
  Transmission Date: 20180711
  Serious: Yes (Life-Threatening, Hospitalization, Other)
  Sender: FDA-Public Use
  Company Number: GB-ROCHE-1609258

PATIENT
  Age: 30 Year
  Sex: Female
  Weight: 59.7 kg

DRUGS (37)
  1. OMEPRAZOLE. [Concomitant]
     Active Substance: OMEPRAZOLE
     Indication: DYSPEPSIA
     Route: 048
     Dates: start: 20150522, end: 20150627
  2. ONDANSETRON [Concomitant]
     Active Substance: ONDANSETRON
     Indication: NAUSEA
     Route: 048
     Dates: start: 20150528, end: 20150615
  3. COTRIMOXAZOLE [Concomitant]
     Active Substance: SULFAMETHOXAZOLE\TRIMETHOPRIM
     Indication: INFECTION
     Route: 048
     Dates: start: 20150528
  4. DEXAMETHASONE. [Concomitant]
     Active Substance: DEXAMETHASONE
     Route: 048
     Dates: start: 20150528, end: 20150531
  5. VINCRISTINE [Concomitant]
     Active Substance: VINCRISTINE
     Indication: LEUKAEMIA
     Dosage: STAT
     Route: 042
     Dates: start: 20150611, end: 20150611
  6. VINCRISTINE [Concomitant]
     Active Substance: VINCRISTINE
     Dosage: STAT
     Route: 042
     Dates: start: 20150618, end: 20150618
  7. NOZINAN [Concomitant]
     Active Substance: LEVOMEPROMAZINE
     Indication: NAUSEA
     Route: 058
  8. DAUNORUBICIN [Concomitant]
     Active Substance: DAUNORUBICIN
     Dosage: STAT
     Route: 042
     Dates: start: 20150618, end: 20150618
  9. CYCLIZINE [Concomitant]
     Active Substance: CYCLIZINE
     Indication: NAUSEA
     Route: 042
     Dates: start: 20150606, end: 20150628
  10. ALLOPURINOL. [Concomitant]
     Active Substance: ALLOPURINOL
     Indication: HYPERURICAEMIA
     Route: 048
     Dates: start: 20150528, end: 20150615
  11. AMBISONE [Concomitant]
     Active Substance: AMPHOTERICIN B
     Indication: INFECTION PROPHYLAXIS
     Route: 042
     Dates: start: 20150528, end: 20150625
  12. CYCLIZINE [Concomitant]
     Active Substance: CYCLIZINE
     Indication: NAUSEA
     Dosage: AS REQUIRED
     Route: 048
     Dates: start: 20150606, end: 20150628
  13. SENNA [Concomitant]
     Active Substance: SENNA LEAF\SENNOSIDES\SENNOSIDES A AND B
     Indication: CONSTIPATION
     Dosage: 1-11 TABS AS REQUIRED
     Route: 048
     Dates: start: 20150529, end: 20150602
  14. MANICOL [Concomitant]
     Indication: CONSTIPATION
     Dosage: 1 SACHET
     Route: 048
     Dates: start: 20150603, end: 20150606
  15. DEXAMETHASONE. [Concomitant]
     Active Substance: DEXAMETHASONE
     Route: 048
     Dates: start: 20150522, end: 20150527
  16. PIRITON [Concomitant]
     Active Substance: CHLORPHENIRAMINE MALEATE
     Route: 042
     Dates: start: 20150530, end: 20150530
  17. DALTEPARIN [Concomitant]
     Active Substance: DALTEPARIN
     Dosage: 5000 U
     Route: 058
     Dates: start: 20150527, end: 20150609
  18. PARACETAMOL [Concomitant]
     Active Substance: ACETAMINOPHEN
     Indication: PYREXIA
     Dosage: AS REQUIRED
     Route: 048
     Dates: start: 20150523, end: 20150626
  19. LACTULOSE. [Concomitant]
     Active Substance: LACTULOSE
     Route: 048
     Dates: start: 20150615, end: 20150630
  20. DEXAMETHASONE. [Concomitant]
     Active Substance: DEXAMETHASONE
     Route: 048
     Dates: start: 20150611, end: 20150614
  21. DAUNORUBICIN [Concomitant]
     Active Substance: DAUNORUBICIN
     Route: 042
     Dates: start: 20150604, end: 20150604
  22. RITUXIMAB. [Suspect]
     Active Substance: RITUXIMAB
     Indication: ACUTE LYMPHOCYTIC LEUKAEMIA
     Dosage: DAYS 3, 10, 17, 25. NEXT DOSE RECEIVED ON 23/JUN/2015.
     Route: 042
     Dates: start: 20150530
  23. ONDANSETRON [Concomitant]
     Active Substance: ONDANSETRON
     Route: 048
     Dates: start: 20150618, end: 20150618
  24. LACTULOSE. [Concomitant]
     Active Substance: LACTULOSE
     Indication: CONSTIPATION
     Dosage: AS REQUIRED
     Route: 048
     Dates: start: 20150529, end: 20150603
  25. LACTULOSE. [Concomitant]
     Active Substance: LACTULOSE
     Route: 048
     Dates: start: 20150609, end: 20150613
  26. DAUNORUBICIN [Concomitant]
     Active Substance: DAUNORUBICIN
     Indication: LEUKAEMIA
     Dosage: STAT
     Route: 042
     Dates: start: 20150611, end: 20150611
  27. PEGASPARGASE [Suspect]
     Active Substance: PEGASPARGASE
     Indication: ACUTE LEUKAEMIA
     Dosage: DAYS 5,19
     Route: 042
     Dates: start: 20150601, end: 20150615
  28. ACYCLOVIR. [Concomitant]
     Active Substance: ACYCLOVIR
     Route: 048
     Dates: start: 20150528
  29. LACTULOSE. [Concomitant]
     Active Substance: LACTULOSE
     Route: 048
     Dates: start: 20150613, end: 20150615
  30. SENNA [Concomitant]
     Active Substance: SENNA LEAF\SENNOSIDES\SENNOSIDES A AND B
     Dosage: 2 TABLETS
     Route: 048
     Dates: start: 20150614
  31. METOCLOPRAMIDE. [Concomitant]
     Active Substance: METOCLOPRAMIDE
     Indication: NAUSEA
     Route: 048
     Dates: start: 20150604, end: 20150606
  32. VINCRISTINE [Concomitant]
     Active Substance: VINCRISTINE
     Dosage: STAT
     Route: 042
     Dates: start: 20150528, end: 20150528
  33. GELOFUSINE (UNITED KINGDOM) [Concomitant]
     Indication: HYPOTENSION
  34. SENNA [Concomitant]
     Active Substance: SENNA LEAF\SENNOSIDES\SENNOSIDES A AND B
     Dosage: 2 TABS DAILY
     Route: 048
     Dates: start: 20150605, end: 20150613
  35. DEXAMETHASONE. [Concomitant]
     Active Substance: DEXAMETHASONE
     Indication: LEUKAEMIA
     Route: 048
     Dates: start: 20150604, end: 20150607
  36. DAUNORUBICIN [Concomitant]
     Active Substance: DAUNORUBICIN
     Dosage: STAT
     Route: 042
     Dates: start: 20150528, end: 20150528
  37. VINCRISTINE [Concomitant]
     Active Substance: VINCRISTINE
     Route: 042
     Dates: start: 20150604, end: 20150604

REACTIONS (3)
  - Device related infection [Recovered/Resolved]
  - Sepsis [Recovered/Resolved]
  - Hyponatraemia [Recovered/Resolved]

NARRATIVE: CASE EVENT DATE: 20150609
